FAERS Safety Report 7177111-3 (Version None)
Quarter: 2010Q4

REPORT INFORMATION
  Report Type: 
  Country: None (occurrence: None)
  Receive Date: 20101207
  Receipt Date: 20101122
  Transmission Date: 20110411
  Serious: Yes (Hospitalization)
  Sender: FDA-Public Use
  Company Number: 022903

PATIENT
  Sex: Male

DRUGS (21)
  1. ROTIGOTINE (ROTIGOTINE) [Suspect]
     Indication: PARKINSON'S DISEASE
     Dosage: (2 MG TRANSDERMAL), (4 MG TRANSDERMAL), (6 MG TRANSDERMAL), (8 MG TRANSDERMAL)
     Route: 062
     Dates: start: 20100903, end: 20100909
  2. ROTIGOTINE (ROTIGOTINE) [Suspect]
     Indication: PARKINSON'S DISEASE
     Dosage: (2 MG TRANSDERMAL), (4 MG TRANSDERMAL), (6 MG TRANSDERMAL), (8 MG TRANSDERMAL)
     Route: 062
     Dates: start: 20100910, end: 20100916
  3. ROTIGOTINE (ROTIGOTINE) [Suspect]
     Indication: PARKINSON'S DISEASE
     Dosage: (2 MG TRANSDERMAL), (4 MG TRANSDERMAL), (6 MG TRANSDERMAL), (8 MG TRANSDERMAL)
     Route: 062
     Dates: start: 20100917, end: 20100923
  4. ROTIGOTINE (ROTIGOTINE) [Suspect]
     Indication: PARKINSON'S DISEASE
     Dosage: (2 MG TRANSDERMAL), (4 MG TRANSDERMAL), (6 MG TRANSDERMAL), (8 MG TRANSDERMAL)
     Route: 062
     Dates: start: 20100924
  5. REBAMIPIDE (MUCOSTA) [Suspect]
     Dosage: (300 MG ORAL)
     Route: 048
     Dates: start: 20100825
  6. MENESIT (MENESIT) [Suspect]
     Dosage: (200 MG ORAL)
     Route: 048
     Dates: start: 20070726
  7. ARTANE [Suspect]
     Dosage: (4 MG ORAL)
     Route: 048
     Dates: start: 20070726
  8. DOPS (DOPS) [Suspect]
     Dosage: (400 MG ORAL)
     Route: 048
     Dates: start: 20090709
  9. ARICEPT [Suspect]
     Dosage: (5 MG ORAL)
     Route: 048
     Dates: start: 20080717
  10. HARNAL (HARNAL D) [Suspect]
     Dosage: (0.2 MG ORAL)
     Route: 048
     Dates: start: 20050101
  11. LUDIOMIL [Suspect]
     Dosage: (30 MG ORAL)
     Route: 048
     Dates: start: 20051129
  12. UBRETID (UBRETID) (NOT SPECIFIED) [Suspect]
     Dosage: (10 MG ORAL)
     Route: 048
     Dates: start: 20070523
  13. CERCINE (CERCINE) [Suspect]
     Dosage: (4 MG ORAL)
     Route: 048
     Dates: start: 20080415
  14. TRYPTANOL /00002202/ (TRYPTANOL) (NOT SPECIFIED) [Suspect]
     Dosage: (10 MG ORAL)
     Route: 048
     Dates: start: 20070424
  15. LENDORMIN (LENDORMIN) (NOT SPECIFIED) [Suspect]
     Dosage: (0.25 MG ORAL)
     Route: 048
     Dates: start: 20050908
  16. SILECE (SILECE) [Suspect]
     Dosage: (1 MG ORAL)
     Route: 048
     Dates: start: 20060110
  17. RINLAXER (RINLAXER) [Suspect]
     Dosage: (375 MG ORAL)
     Route: 048
     Dates: start: 20100825
  18. LOXONIN /00890702/ (LOXONIN) (NOT SPECIFIED) [Suspect]
     Dosage: (180 MG ORAL)
     Route: 048
     Dates: start: 20100825
  19. VOLTAREN [Suspect]
     Dosage: (50 MG ORAL)
     Route: 048
     Dates: start: 20100824
  20. UNKNOWN (ELADERM) [Suspect]
     Dosage: (QS TRANSDERMAL)
     Route: 062
     Dates: start: 20101009
  21. FERROMIA /00023516/ (FERROMIA) [Suspect]
     Dosage: (50 MG ORAL)
     Route: 048
     Dates: start: 20101030

REACTIONS (2)
  - GASTRIC HAEMORRHAGE [None]
  - IRON DEFICIENCY ANAEMIA [None]
